FAERS Safety Report 7089089-1 (Version None)
Quarter: 2010Q4

REPORT INFORMATION
  Report Type: 
  Country: None (occurrence: None)
  Receive Date: 20101108
  Receipt Date: 20101028
  Transmission Date: 20110411
  Serious: Yes (Other)
  Sender: FDA-Public Use
  Company Number: B0683170A

PATIENT

DRUGS (2)
  1. PAZOPANIB [Suspect]
     Route: 065
  2. AMITRIPTYLINE HCL [Concomitant]
     Indication: PAIN

REACTIONS (1)
  - GRAND MAL CONVULSION [None]
